FAERS Safety Report 19750698 (Version 2)
Quarter: 2021Q3

REPORT INFORMATION
  Report Type: Spontaneous
  Country: US (occurrence: US)
  Receive Date: 20210826
  Receipt Date: 20210927
  Transmission Date: 20211014
  Serious: Yes (Hospitalization)
  Sender: FDA-Public Use
  Company Number: US-ORGANON-O2108USA001667

PATIENT
  Age: 57 Year
  Sex: Female

DRUGS (2)
  1. COZAAR [Suspect]
     Active Substance: LOSARTAN POTASSIUM
     Indication: HYPERTENSION
     Dosage: FOR 2 YEARS
     Route: 048
     Dates: start: 2019
  2. COZAAR [Suspect]
     Active Substance: LOSARTAN POTASSIUM
     Dosage: 1 PILL ONCE DAILY
     Route: 048
     Dates: start: 202107

REACTIONS (4)
  - Product container issue [Unknown]
  - Physical product label issue [Unknown]
  - Hypertension [Not Recovered/Not Resolved]
  - Dizziness [Not Recovered/Not Resolved]

NARRATIVE: CASE EVENT DATE: 202107
